FAERS Safety Report 4398031-3 (Version None)
Quarter: 2004Q2

REPORT INFORMATION
  Report Type: 
  Country: None (occurrence: None)
  Receive Date: 20040621
  Receipt Date: 20031028
  Transmission Date: 20050107
  Serious: Yes (Death)
  Sender: FDA-Public Use
  Company Number: USA-2003-0009144

PATIENT
  Age: 23 Year
  Sex: Female
  Weight: 92.5 kg

DRUGS (10)
  1. OXYCONTIN [Suspect]
     Dosage: 80 MG, ORAL
     Route: 048
  2. HYDROCODONE BITARTRATE [Suspect]
  3. FLUOXETINE [Suspect]
  4. PROMETHAZINE [Suspect]
  5. MARIJUANA (CANNABIS) [Suspect]
  6. ETHANOL (ETHANOL) [Suspect]
  7. AMITRIPTYLINE HCL [Suspect]
  8. CAFFEINE (CAFFEINE) [Suspect]
  9. NORTRIPTYLINE HCL [Suspect]
  10. NICOTINE [Suspect]

REACTIONS (1)
  - INTENTIONAL OVERDOSE [None]
